FAERS Safety Report 7339824-X (Version None)
Quarter: 2011Q1

REPORT INFORMATION
  Report Type: 
  Country: None (occurrence: None)
  Receive Date: 20110304
  Receipt Date: 20110304
  Transmission Date: 20110831
  Serious: Yes (Hospitalization, Disabling)
  Sender: FDA-Public Use
  Company Number: None

PATIENT
  Age: 58 Year
  Sex: Female
  Weight: 120 kg

DRUGS (3)
  1. WARFARIN [Concomitant]
  2. ENOXAPARIN [Suspect]
     Indication: PULMONARY OEDEMA
     Dosage: 120 MG Q12H SQ
     Route: 058
     Dates: start: 20101011, end: 20101016
  3. ENOXAPARIN [Suspect]
     Indication: PULMONARY OEDEMA
     Dosage: 120 MG Q12H SQ
     Route: 058
     Dates: start: 20101020, end: 20101026

REACTIONS (3)
  - RASH [None]
  - POLYMYOSITIS [None]
  - INJECTION SITE HAEMATOMA [None]
